FAERS Safety Report 6701267-7 (Version None)
Quarter: 2010Q2

REPORT INFORMATION
  Report Type: 
  Country: None (occurrence: None)
  Receive Date: 20100427
  Receipt Date: 20100412
  Transmission Date: 20101027
  Serious: Yes (Life-Threatening, Hospitalization, Other)
  Sender: FDA-Public Use
  Company Number: 2007001706

PATIENT
  Age: 53 Year
  Sex: Male

DRUGS (4)
  1. TARCEVA [Suspect]
     Indication: LUNG ADENOCARCINOMA
     Dosage: 150 MG (150 MG), ORAL
     Route: 048
     Dates: start: 20070816, end: 20070825
  2. HYDROXYZINE [Concomitant]
  3. LANSOPRAZOLE [Concomitant]
  4. LOPERAMIDE (LOPERAMIDE) [Concomitant]

REACTIONS (10)
  - ACUTE RESPIRATORY FAILURE [None]
  - COLLAPSE OF LUNG [None]
  - CYANOSIS [None]
  - INTERSTITIAL LUNG DISEASE [None]
  - LUNG NEOPLASM MALIGNANT [None]
  - METASTASES TO PLEURA [None]
  - PURULENCE [None]
  - RASH PAPULAR [None]
  - RECURRENT CANCER [None]
  - USE OF ACCESSORY RESPIRATORY MUSCLES [None]
